FAERS Safety Report 24886102 (Version 2)
Quarter: 2025Q1

REPORT INFORMATION
  Report Type: Report from Study
  Country: PT (occurrence: PT)
  Receive Date: 20250125
  Receipt Date: 20250227
  Transmission Date: 20250408
  Serious: Yes (Hospitalization, Other)
  Sender: CSL BEHRING
  Company Number: PT-Vifor (International) Inc.-VIT-2024-08822

PATIENT
  Age: 76 Year
  Sex: Male

DRUGS (4)
  1. VELTASSA [Suspect]
     Active Substance: PATIROMER
     Indication: Renin-angiotensin system inhibition
     Dosage: 8.4,G,QD
     Route: 065
     Dates: start: 20230105, end: 2024
  2. VELTASSA [Suspect]
     Active Substance: PATIROMER
     Indication: Hyperkalaemia
     Dosage: 8.4,G,QD
     Route: 065
     Dates: start: 20230201
  3. VELTASSA [Suspect]
     Active Substance: PATIROMER
     Dosage: 16.8 G, QD
     Route: 065
     Dates: start: 20230214, end: 20230220
  4. VELTASSA [Suspect]
     Active Substance: PATIROMER
     Dosage: 8.4 G, QD
     Route: 065
     Dates: start: 20230620, end: 20230903

REACTIONS (11)
  - Device related infection [Fatal]
  - Inflammation [Fatal]
  - Ischaemic cardiomyopathy [Recovered/Resolved with Sequelae]
  - Acute kidney injury [Recovered/Resolved]
  - Ill-defined disorder [Recovered/Resolved]
  - Urosepsis [Recovered/Resolved with Sequelae]
  - Cardiovascular insufficiency [Recovered/Resolved with Sequelae]
  - Nervous system disorder [Recovered/Resolved with Sequelae]
  - Renal impairment [Recovered/Resolved with Sequelae]
  - Dyspnoea [Recovered/Resolved]
  - Hypercalcaemia [Unknown]

NARRATIVE: CASE EVENT DATE: 20230101
